FAERS Safety Report 7258576-5 (Version None)
Quarter: 2011Q1

REPORT INFORMATION
  Report Type: 
  Country: None (occurrence: None)
  Receive Date: 20110129
  Receipt Date: 20100721
  Transmission Date: 20110831
  Serious: No
  Sender: FDA-Public Use
  Company Number: US-ABBOTT-06P-163-0331908-00

PATIENT
  Sex: Female
  Weight: 81.266 kg

DRUGS (19)
  1. ZOLOFT [Concomitant]
     Indication: OBSESSIVE-COMPULSIVE DISORDER
  2. HUMIRA [Suspect]
     Indication: RHEUMATOID ARTHRITIS
     Route: 058
     Dates: start: 20060101, end: 20060401
  3. ENALAPRIL MALEATE AND HYDROCHLOROTHIAZIDE [Concomitant]
     Indication: HYPERTENSION
     Route: 048
  4. METOPROLOL [Concomitant]
     Indication: HYPERTENSION
     Route: 048
  5. REMIRON [Concomitant]
     Indication: PRODUCT USED FOR UNKNOWN INDICATION
     Route: 048
  6. ZOLOFT [Concomitant]
     Indication: DEPRESSION
     Route: 048
  7. NEXIUM [Concomitant]
     Indication: GASTROOESOPHAGEAL REFLUX DISEASE
     Route: 048
  8. HUMIRA [Suspect]
     Dates: start: 20030101, end: 20060101
  9. PLAVIX [Concomitant]
     Indication: PERIPHERAL VASCULAR DISORDER
     Route: 048
  10. HUMIRA [Suspect]
  11. LIPITOR [Concomitant]
     Indication: HYPERLIPIDAEMIA
     Route: 048
  12. FOLIC ACID [Concomitant]
     Indication: PRODUCT USED FOR UNKNOWN INDICATION
     Route: 048
  13. MORAZAPN [Concomitant]
     Indication: PRODUCT USED FOR UNKNOWN INDICATION
  14. ASA [Concomitant]
     Indication: PERIPHERAL VASCULAR DISORDER
     Route: 048
  15. FERROUS SULFATE TAB [Concomitant]
     Indication: ANAEMIA
     Route: 048
  16. METHOTREXATE [Concomitant]
     Indication: RHEUMATOID ARTHRITIS
     Route: 030
     Dates: start: 20060301
  17. ATIVAN [Concomitant]
     Indication: PRODUCT USED FOR UNKNOWN INDICATION
  18. DITROPAN [Concomitant]
     Indication: BLADDER DISORDER
  19. LORAZEPAM [Concomitant]
     Indication: ANXIETY
     Route: 048

REACTIONS (9)
  - CONDITION AGGRAVATED [None]
  - RHEUMATOID ARTHRITIS [None]
  - RED BLOOD CELL SEDIMENTATION RATE INCREASED [None]
  - MOVEMENT DISORDER [None]
  - JOINT RANGE OF MOTION DECREASED [None]
  - FINGER DEFORMITY [None]
  - PAIN IN EXTREMITY [None]
  - NEURALGIA [None]
  - TENDONITIS [None]
